FAERS Safety Report 8986615 (Version 2)
Quarter: 2013Q3

REPORT INFORMATION
  Report Type: Report from Study
  Country: HN (occurrence: HN)
  Receive Date: 20121227
  Receipt Date: 20130830
  Transmission Date: 20140515
  Serious: Yes (Death)
  Sender: FDA-Public Use
  Company Number: PHHY2012HN119952

PATIENT
  Age: 58 Year
  Sex: Female

DRUGS (1)
  1. GLIVEC [Suspect]
     Indication: GASTROINTESTINAL STROMAL TUMOUR
     Dosage: 400 MG, ONCE PER DAY
     Route: 048

REACTIONS (1)
  - Death [Fatal]
